FAERS Safety Report 10070758 (Version 2)
Quarter: 2014Q3

REPORT INFORMATION
  Report Type: Spontaneous
  Country: AU (occurrence: AU)
  Receive Date: 20140410
  Receipt Date: 20140819
  Transmission Date: 20150326
  Serious: Yes (Life-Threatening, Hospitalization, Other)
  Sender: FDA-Public Use
  Company Number: AU-BAXTER-2014BAX017175

PATIENT
  Age: 62 Year
  Sex: Male

DRUGS (1)
  1. KIOVIG [Suspect]
     Active Substance: HUMAN IMMUNOGLOBULIN G
     Indication: IMMUNE THROMBOCYTOPENIC PURPURA
     Route: 042
     Dates: start: 20140328, end: 20140328

REACTIONS (6)
  - Restlessness [Unknown]
  - Hypersensitivity [Recovering/Resolving]
  - Anxiety [Unknown]
  - Pyrexia [Unknown]
  - Chills [Unknown]
  - Flushing [Unknown]

NARRATIVE: CASE EVENT DATE: 20140328
